FAERS Safety Report 12720671 (Version 1)
Quarter: 2016Q3

REPORT INFORMATION
  Report Type: Spontaneous
  Country: US (occurrence: US)
  Receive Date: 20160907
  Receipt Date: 20160907
  Transmission Date: 20161109
  Serious: Yes (Life-Threatening)
  Sender: FDA-Public Use
  Company Number: US-CELGENEUS-USA-2016086402

PATIENT
  Sex: Male

DRUGS (1)
  1. THALOMID [Suspect]
     Active Substance: THALIDOMIDE
     Indication: PLASMA CELL MYELOMA
     Dosage: 100 MILLIGRAM
     Route: 048
     Dates: start: 201512

REACTIONS (8)
  - Constipation [Unknown]
  - Dizziness [Unknown]
  - Muscle disorder [Unknown]
  - Peripheral swelling [Unknown]
  - Fatigue [Unknown]
  - Blister [Unknown]
  - Renal disorder [Unknown]
  - Neuropathy peripheral [Unknown]
